FAERS Safety Report 12402930 (Version 4)
Quarter: 2016Q3

REPORT INFORMATION
  Report Type: Spontaneous
  Country: BR (occurrence: BR)
  Receive Date: 20160525
  Receipt Date: 20160725
  Transmission Date: 20161109
  Serious: Yes (Hospitalization, Other)
  Sender: FDA-Public Use
  Company Number: BR-PFIZER INC-2016266446

PATIENT
  Sex: Female

DRUGS (3)
  1. DEXAMETHASONE. [Suspect]
     Active Substance: DEXAMETHASONE
     Indication: ACUTE LYMPHOCYTIC LEUKAEMIA
     Dosage: 4 MG, 2X/DAY
     Dates: start: 200501, end: 200509
  2. ARACYTIN [Suspect]
     Active Substance: CYTARABINE
     Indication: ACUTE LYMPHOCYTIC LEUKAEMIA
     Dosage: WEEKLY (DID NOT KNOW TO INFORM THE DOSAGE)
     Dates: start: 200501, end: 200509
  3. BACTRIM [Concomitant]
     Active Substance: SULFAMETHOXAZOLE\TRIMETHOPRIM
     Dosage: UNK
     Dates: end: 2005

REACTIONS (6)
  - Type 1 diabetes mellitus [Recovered/Resolved]
  - Glucose tolerance impaired [Recovered/Resolved]
  - Syncope [Recovered/Resolved]
  - Blood glucose increased [Not Recovered/Not Resolved]
  - Pancreatitis haemorrhagic [Recovered/Resolved]
  - Hyperglycaemia [Recovered/Resolved]

NARRATIVE: CASE EVENT DATE: 2005
